FAERS Safety Report 20350743 (Version 2)
Quarter: 2022Q1

REPORT INFORMATION
  Report Type: Spontaneous
  Country: US (occurrence: US)
  Receive Date: 20220119
  Receipt Date: 20220210
  Transmission Date: 20220424
  Serious: Yes (Other)
  Sender: FDA-Public Use
  Company Number: US-INDIVIOR EUROPE LIMITED-INDV-132569-2022

PATIENT

DRUGS (3)
  1. SUBOXONE [Suspect]
     Active Substance: BUPRENORPHINE HYDROCHLORIDE\NALOXONE HYDROCHLORIDE
     Indication: Drug dependence
     Dosage: ONE FOURTH OF A FILM
     Route: 060
     Dates: start: 202111
  2. SUBOXONE [Suspect]
     Active Substance: BUPRENORPHINE HYDROCHLORIDE\NALOXONE HYDROCHLORIDE
     Dosage: 16 MILLIGRAM, UNKNOWN (TOOK A WHOLE 8 MG FILM AND TOOK ANOTHER FILM)
     Route: 060
     Dates: start: 202111
  3. LISINOPRIL [Concomitant]
     Active Substance: LISINOPRIL
     Indication: Product used for unknown indication
     Dosage: UNK
     Route: 065

REACTIONS (9)
  - Seizure [Unknown]
  - Drug withdrawal syndrome [Unknown]
  - Formication [Unknown]
  - Hyperhidrosis [Unknown]
  - Judgement impaired [Unknown]
  - Road traffic accident [Recovered/Resolved]
  - Somnolence [Unknown]
  - Intentional product use issue [Recovered/Resolved]
  - Anxiety [Unknown]
